FAERS Safety Report 16946395 (Version 1)
Quarter: 2019Q4

REPORT INFORMATION
  Report Type: Spontaneous
  Country: CH (occurrence: CH)
  Receive Date: 20191022
  Receipt Date: 20191022
  Transmission Date: 20200122
  Serious: Yes (Other)
  Sender: FDA-Public Use
  Company Number: CH-UCBSA-2019043230

PATIENT
  Age: 43 Year
  Sex: Male
  Weight: 85 kg

DRUGS (4)
  1. TEMOZOLOMIDE. [Concomitant]
     Active Substance: TEMOZOLOMIDE
     Indication: NEOPLASM
     Dosage: UNK
     Dates: start: 201902
  2. LAMICTAL [Concomitant]
     Active Substance: LAMOTRIGINE
     Indication: EPILEPSY
     Dosage: 250 MILLIGRAM, 2X/DAY (BID)
  3. KEPPRA [Suspect]
     Active Substance: LEVETIRACETAM
     Indication: PRODUCT USED FOR UNKNOWN INDICATION
  4. URBANYL [Concomitant]
     Active Substance: CLOBAZAM
     Indication: PRODUCT USED FOR UNKNOWN INDICATION

REACTIONS (5)
  - Restlessness [Unknown]
  - Hypoaesthesia [Unknown]
  - Fatigue [Unknown]
  - Neoplasm progression [Unknown]
  - Partial seizures [Unknown]

NARRATIVE: CASE EVENT DATE: 2019
